FAERS Safety Report 9727046 (Version 2)
Quarter: 2013Q4

REPORT INFORMATION
  Report Type: Spontaneous
  Country: US (occurrence: US)
  Receive Date: 20131203
  Receipt Date: 20131212
  Transmission Date: 20140711
  Serious: Yes (Other)
  Sender: FDA-Public Use
  Company Number: US-PFIZER INC-2013343095

PATIENT
  Age: 45 Year
  Sex: Female
  Weight: 54.42 kg

DRUGS (6)
  1. LYRICA [Suspect]
     Indication: FIBROMYALGIA
     Dosage: 224 MG, 2X/DAY
     Route: 048
     Dates: start: 201210
  2. LEXAPRO [Concomitant]
     Dosage: 20 MG, 1X/DAY
  3. MORPHINE [Concomitant]
     Indication: PAIN
     Dosage: 60 MG, 3X/DAY
  4. MORPHINE [Concomitant]
     Indication: INTERVERTEBRAL DISC DISORDER
  5. XANAX [Concomitant]
     Dosage: 1 MG, UP TO FOUR TIMES A DAY AS NEEDED
  6. BACLOFEN [Concomitant]
     Dosage: 10 MG, 3X/DAY

REACTIONS (5)
  - Road traffic accident [Unknown]
  - Feeling abnormal [Unknown]
  - Impaired work ability [Unknown]
  - Somnolence [Unknown]
  - Pain [Unknown]
